FAERS Safety Report 13964025 (Version 2)
Quarter: 2017Q3

REPORT INFORMATION
  Report Type: Spontaneous
  Country: US (occurrence: US)
  Receive Date: 20170913
  Receipt Date: 20170925
  Transmission Date: 20171128
  Serious: Yes (Other)
  Sender: FDA-Public Use
  Company Number: US-MALLINCKRODT-T201703649

PATIENT
  Sex: Male
  Weight: 79 kg

DRUGS (2)
  1. H.P. ACTHAR [Suspect]
     Active Substance: CORTICOTROPIN
     Indication: MULTIPLE SCLEROSIS
     Dosage: 1ML - 80UNITS, 1 PER DAY
     Route: 058
  2. H.P. ACTHAR [Suspect]
     Active Substance: CORTICOTROPIN
     Dosage: 80 UNITS, EVERY DAY FOR 10 DAYS
     Route: 065
     Dates: start: 20170823, end: 20170902

REACTIONS (12)
  - Crying [Unknown]
  - Tremor [Unknown]
  - Rash [Unknown]
  - Scrotal swelling [Unknown]
  - Mood altered [Unknown]
  - Measles [Unknown]
  - Injection site bruising [Unknown]
  - Swelling [Unknown]
  - Liquid product physical issue [Unknown]
  - Injection site haematoma [Unknown]
  - Peripheral swelling [Unknown]
  - Epistaxis [Unknown]
